FAERS Safety Report 10929225 (Version 2)
Quarter: 2015Q2

REPORT INFORMATION
  Report Type: Spontaneous
  Country: US (occurrence: US)
  Receive Date: 20150319
  Receipt Date: 20150524
  Transmission Date: 20150821
  Serious: No
  Sender: FDA-Public Use
  Company Number: US-JNJFOC-20131112187

PATIENT
  Sex: Female

DRUGS (11)
  1. OMEPRAZOLE. [Concomitant]
     Active Substance: OMEPRAZOLE
  2. CONCERTA [Suspect]
     Active Substance: METHYLPHENIDATE HYDROCHLORIDE
     Indication: PRODUCT USED FOR UNKNOWN INDICATION
     Route: 048
  3. PLAQUENIL [Concomitant]
     Active Substance: HYDROXYCHLOROQUINE SULFATE
  4. CALCIUM [Concomitant]
     Active Substance: CALCIUM
  5. LYRICA [Concomitant]
     Active Substance: PREGABALIN
  6. VITAMIN D [Concomitant]
     Active Substance: CHOLECALCIFEROL
  7. IBUPROFEN. [Concomitant]
     Active Substance: IBUPROFEN
  8. LAMICTAL [Concomitant]
     Active Substance: LAMOTRIGINE
  9. QUETIAPINE [Concomitant]
     Active Substance: QUETIAPINE
  10. ZINC SULFATE [Concomitant]
     Active Substance: ZINC SULFATE\ZINC SULFATE ANHYDROUS
  11. LEVOTHYROXINE [Concomitant]
     Active Substance: LEVOTHYROXINE

REACTIONS (1)
  - Pruritus [Unknown]
